FAERS Safety Report 6946250-1 (Version None)
Quarter: 2010Q3

REPORT INFORMATION
  Report Type: 
  Country: None (occurrence: None)
  Receive Date: 20100824
  Receipt Date: 20100816
  Transmission Date: 20110219
  Serious: Yes (Death, Hospitalization, Other)
  Sender: FDA-Public Use
  Company Number: 2010JP004090

PATIENT
  Age: 81 Year
  Sex: Female
  Weight: 58 kg

DRUGS (11)
  1. PROGRAF [Suspect]
     Indication: RHEUMATOID ARTHRITIS
     Dosage: 1 MG, UID/QD, ORAL
     Route: 048
     Dates: start: 20100312, end: 20100408
  2. RHEUMATREX [Suspect]
     Indication: RHEUMATOID ARTHRITIS
     Dosage: 6 MG, WEEKLY, ORAL
     Route: 048
     Dates: start: 20091224, end: 20100408
  3. DIOVAN [Concomitant]
  4. PRORENAL (LIMAPROST) [Concomitant]
  5. RONFLEMAN (BROTIZOLAM) [Concomitant]
  6. GAMOFA (FAMOTIDINE) [Concomitant]
  7. AMLODIPINE [Concomitant]
  8. FUROSEMIDE [Concomitant]
  9. BONALON (ALENDRONATE SODIUM) [Concomitant]
  10. PREDNISOLONE [Concomitant]
  11. LOXOMARIN (LOXOPROFEN SODIUM) [Concomitant]

REACTIONS (7)
  - COMA SCALE ABNORMAL [None]
  - GASTROINTESTINAL PERFORATION [None]
  - GENERAL PHYSICAL HEALTH DETERIORATION [None]
  - PANCYTOPENIA [None]
  - PERITONITIS [None]
  - RESPIRATORY FAILURE [None]
  - URINARY TRACT INFECTION [None]
